FAERS Safety Report 6876967 (Version 3)
Quarter: 2020Q3

REPORT INFORMATION
  Report Type: Report from Study
  Country: US (occurrence: US)
  Receive Date: 20090109
  Receipt Date: 20090122
  Transmission Date: 20201104
  Serious: Yes (Death, Other)
  Sender: FDA-Public Use
  Company Number: US-ROCHE-606215

PATIENT
  Age: 70 Year
  Sex: Female

DRUGS (1)
  1. IBANDRONIC ACID. [Suspect]
     Active Substance: IBANDRONIC ACID
     Indication: PRODUCT USED FOR UNKNOWN INDICATION
     Route: 065

REACTIONS (4)
  - Septic shock [Fatal]
  - Amnesia [Unknown]
  - Lung neoplasm malignant [Fatal]
  - Lung cancer metastatic [Unknown]

NARRATIVE: CASE EVENT DATE: 20080927
